FAERS Safety Report 13040237 (Version 2)
Quarter: 2016Q4

REPORT INFORMATION
  Report Type: Spontaneous
  Country: EG (occurrence: EG)
  Receive Date: 20161219
  Receipt Date: 20161228
  Transmission Date: 20170207
  Serious: Yes (Hospitalization, Disabling)
  Sender: FDA-Public Use
  Company Number: EG-NOVOPROD-522715

PATIENT
  Age: 66 Year
  Sex: Female
  Weight: 105 kg

DRUGS (18)
  1. NOVOMIX 30 FLEXPEN [Suspect]
     Active Substance: INSULIN ASPART
     Indication: TYPE 2 DIABETES MELLITUS
     Dosage: 10-30U NIGHT
     Route: 058
     Dates: end: 20160923
  2. ELTROXIN [Concomitant]
     Active Substance: LEVOTHYROXINE
     Indication: HYPOTHYROIDISM
     Dosage: 50 UG
     Route: 048
  3. COLOVERIN D [Concomitant]
     Dosage: STARTED 1 YR AGO
     Route: 048
  4. LASIX [Concomitant]
     Active Substance: FUROSEMIDE
     Indication: OEDEMA PERIPHERAL
  5. MODURETIC 5-50 [Concomitant]
     Active Substance: AMILORIDE HYDROCHLORIDE\HYDROCHLOROTHIAZIDE
     Indication: OEDEMA PERIPHERAL
     Dosage: UNK
     Route: 048
  6. ELTROXIN [Concomitant]
     Active Substance: LEVOTHYROXINE
     Dosage: 100 UG
     Route: 048
  7. VOLTAREN [Concomitant]
     Active Substance: DICLOFENAC SODIUM
     Indication: OSTEOARTHRITIS
     Dosage: UNK
     Route: 065
  8. NURIBAN [Concomitant]
     Indication: ENURESIS
     Dosage: 1 TAB, QD (NIGHT)
     Route: 048
     Dates: start: 20160923
  9. GLUCOPHAGE [Concomitant]
     Active Substance: METFORMIN HYDROCHLORIDE
     Indication: DIABETES MELLITUS
     Dosage: 850
     Route: 048
  10. VITAMIN B [Concomitant]
     Active Substance: VITAMIN B
     Indication: DIABETES MELLITUS
     Dosage: UNK
     Route: 045
     Dates: start: 20160923
  11. GLUCOVANCE [Concomitant]
     Active Substance: GLYBURIDE\METFORMIN HYDROCHLORIDE
     Dosage: 500/5 (3TABLETS WITH MEALS )
     Route: 048
     Dates: end: 20160923
  12. VITAMINS WITH MINERALS [Concomitant]
     Active Substance: MINERALS\VITAMINS
     Indication: DIABETES MELLITUS
     Dosage: UNK
     Route: 048
     Dates: start: 20160923
  13. XALATAN [Concomitant]
     Active Substance: LATANOPROST
     Indication: GLAUCOMA
     Dosage: STARTED 2 YRS AGO
     Route: 003
  14. CONTROLOC                          /01263201/ [Concomitant]
     Indication: GASTRITIS
     Dosage: UNK
     Route: 048
  15. GLUCOVANCE [Concomitant]
     Active Substance: GLYBURIDE\METFORMIN HYDROCHLORIDE
     Indication: DIABETES MELLITUS
     Dosage: 500/2.5 (STARTED 6YRS AGO)
     Route: 048
  16. GLUTAZON [Concomitant]
     Indication: DIABETES MELLITUS
     Dosage: 30 (STARTED 6YRS AGO)
     Route: 048
     Dates: end: 20160923
  17. DEPOVIT B12 [Concomitant]
     Indication: DIABETES MELLITUS
     Dosage: STARTED 6 YRS AGO
     Route: 030
  18. BRUFEN                             /00109201/ [Concomitant]
     Active Substance: IBUPROFEN
     Indication: OSTEOARTHRITIS
     Dosage: UNK
     Route: 065

REACTIONS (3)
  - Muscle abscess [Not Recovered/Not Resolved]
  - Gangrene [Not Recovered/Not Resolved]
  - Blood glucose increased [Not Recovered/Not Resolved]
